FAERS Safety Report 13256213 (Version 1)
Quarter: 2017Q1

REPORT INFORMATION
  Report Type: Spontaneous
  Country: US (occurrence: US)
  Receive Date: 20170220
  Receipt Date: 20170220
  Transmission Date: 20170428
  Serious: Yes (Death)
  Sender: FDA-Public Use
  Company Number: None

PATIENT
  Age: 90 Year
  Sex: Male

DRUGS (18)
  1. PRESERVISION [Concomitant]
     Active Substance: MINERALS\VITAMINS
  2. AMLODIPINE [Concomitant]
     Active Substance: AMLODIPINE BESYLATE
  3. OMEPRAZOLE. [Concomitant]
     Active Substance: OMEPRAZOLE
  4. VISUDYNE [Concomitant]
     Active Substance: VERTEPORFIN
  5. FINAETERIDE [Concomitant]
  6. FUROSEMIDE. [Concomitant]
     Active Substance: FUROSEMIDE
  7. CELEBREX [Concomitant]
     Active Substance: CELECOXIB
  8. LEVOTHYROXIN [Concomitant]
     Active Substance: LEVOTHYROXINE
  9. TAMSULOSIN [Concomitant]
     Active Substance: TAMSULOSIN
  10. IRON [Concomitant]
     Active Substance: IRON
  11. SIMVASTATIN. [Concomitant]
     Active Substance: SIMVASTATIN
  12. VALSARTAN. [Concomitant]
     Active Substance: VALSARTAN
  13. LUCENTIS [Concomitant]
     Active Substance: RANIBIZUMAB
  14. VITAMIN C [Concomitant]
     Active Substance: ASCORBIC ACID
  15. XGEVA [Suspect]
     Active Substance: DENOSUMAB
     Indication: PROSTATE CANCER
     Route: 058
     Dates: start: 20160628, end: 20170208
  16. HYDRALAZINE [Concomitant]
     Active Substance: HYDRALAZINE HYDROCHLORIDE
  17. CALCIUM [Concomitant]
     Active Substance: CALCIUM
  18. VITAMIN D3 [Concomitant]
     Active Substance: CHOLECALCIFEROL

REACTIONS (1)
  - Death [None]

NARRATIVE: CASE EVENT DATE: 20170208
